FAERS Safety Report 19877843 (Version 1)
Quarter: 2021Q3

REPORT INFORMATION
  Report Type: Spontaneous
  Country: US (occurrence: US)
  Receive Date: 20210923
  Receipt Date: 20210923
  Transmission Date: 20211014
  Serious: No
  Sender: FDA-Public Use
  Company Number: US-MATRIXX INITIATIVES, INC.-2118735

PATIENT
  Age: 16 Year
  Sex: Female
  Weight: 77.27 kg

DRUGS (2)
  1. ZICAM EXTREME CONGESTION RELIEF (OXYMETAZOLINE HYDROCHLORIDE) [Suspect]
     Active Substance: OXYMETAZOLINE HYDROCHLORIDE
     Indication: NASAL CONGESTION
     Route: 045
     Dates: start: 20210911, end: 20210912
  2. ACCUTANE [Concomitant]
     Active Substance: ISOTRETINOIN

REACTIONS (2)
  - Nasal discomfort [None]
  - Anosmia [None]
